FAERS Safety Report 7115539-8 (Version None)
Quarter: 2010Q4

REPORT INFORMATION
  Report Type: 
  Country: None (occurrence: None)
  Receive Date: 20101122
  Receipt Date: 20101112
  Transmission Date: 20110411
  Serious: Yes (Hospitalization)
  Sender: FDA-Public Use
  Company Number: IE-MEDIMMUNE-MEDI-0011807

PATIENT
  Sex: Female

DRUGS (6)
  1. SYNAGIS [Suspect]
     Route: 030
     Dates: start: 20101022, end: 20101022
  2. CAPTOPRIL [Concomitant]
  3. LANSOPRAZOLE [Concomitant]
  4. SPIRONOLACTONE [Concomitant]
  5. FUROSEMIDE [Concomitant]
  6. DIGOXIN [Concomitant]

REACTIONS (2)
  - MALAISE [None]
  - VIRAL INFECTION [None]
